FAERS Safety Report 21291161 (Version 1)
Quarter: 2022Q3

REPORT INFORMATION
  Report Type: Spontaneous
  Country: BR (occurrence: None)
  Receive Date: 20220903
  Receipt Date: 20220903
  Transmission Date: 20221026
  Serious: Yes (Other)
  Sender: FDA-Public Use
  Company Number: BR-MICRO LABS LIMITED-ML2022-04391

PATIENT
  Age: 3 Year
  Weight: 10.5 kg

DRUGS (3)
  1. CLOBAZAM [Suspect]
     Active Substance: CLOBAZAM
  2. PHENOBARBITAL [Suspect]
     Active Substance: PHENOBARBITAL
     Dosage: 45 DROPS/DAY (4%)
  3. VIGABATRIN [Suspect]
     Active Substance: VIGABATRIN

REACTIONS (2)
  - Seizure [Unknown]
  - Medication error [Unknown]
